FAERS Safety Report 9748210 (Version 2)
Quarter: 2014Q1

REPORT INFORMATION
  Report Type: Spontaneous
  Country: US (occurrence: US)
  Receive Date: 20131212
  Receipt Date: 20140203
  Transmission Date: 20141002
  Serious: No
  Sender: FDA-Public Use
  Company Number: US-PFIZER INC-2013354482

PATIENT
  Age: 8 Year
  Sex: Male

DRUGS (3)
  1. QUILLIVANT XR [Suspect]
     Indication: ATTENTION DEFICIT/HYPERACTIVITY DISORDER
     Dosage: 20 MG, 1X/DAY
     Route: 048
     Dates: start: 20131101, end: 201311
  2. QUILLIVANT XR [Suspect]
     Dosage: 30 MG, 1X/DAY
     Route: 048
     Dates: start: 201311, end: 201311
  3. QUILLIVANT XR [Suspect]
     Dosage: 40 MG, 1X/DAY
     Route: 048
     Dates: start: 201311, end: 20131125

REACTIONS (1)
  - Drug ineffective [Recovered/Resolved]
